FAERS Safety Report 5713282-0 (Version None)
Quarter: 2008Q2

REPORT INFORMATION
  Report Type: 
  Country: None (occurrence: None)
  Receive Date: 20080422
  Receipt Date: 20080417
  Transmission Date: 20081010
  Serious: Yes (Other)
  Sender: FDA-Public Use
  Company Number: AU-ASTRAZENECA-2008AP02788

PATIENT
  Age: 10900 Day
  Sex: Female

DRUGS (3)
  1. MARCAINE [Suspect]
     Route: 037
     Dates: start: 20080328, end: 20080328
  2. FENTANYL CITRATE [Concomitant]
     Indication: ANALGESIA
     Route: 037
     Dates: start: 20080328, end: 20080328
  3. MORPHINE [Concomitant]
     Indication: ANALGESIA
     Route: 037
     Dates: start: 20080328, end: 20080328

REACTIONS (2)
  - ANAESTHETIC COMPLICATION [None]
  - PAIN [None]
